FAERS Safety Report 6413751-4 (Version None)
Quarter: 2009Q4

REPORT INFORMATION
  Report Type: 
  Country: None (occurrence: None)
  Receive Date: 20091026
  Receipt Date: 20090924
  Transmission Date: 20100525
  Serious: No
  Sender: FDA-Public Use
  Company Number: US-BAYER-200934397NA

PATIENT
  Age: 36 Year
  Sex: Female

DRUGS (1)
  1. MIRENA [Suspect]
     Indication: METRORRHAGIA
     Dosage: CONTINUOUS
     Route: 015
     Dates: start: 20090802, end: 20090920

REACTIONS (1)
  - DEVICE EXPULSION [None]
